FAERS Safety Report 4998565-4 (Version None)
Quarter: 2006Q2

REPORT INFORMATION
  Report Type: 
  Country: None (occurrence: None)
  Receive Date: 20060508
  Receipt Date: 20060424
  Transmission Date: 20061013
  Serious: Yes (Hospitalization, Other)
  Sender: FDA-Public Use
  Company Number: GBWYE532805APR06

PATIENT
  Age: 72 Year
  Sex: Male

DRUGS (4)
  1. RAPAMUNE [Suspect]
     Indication: RENAL TRANSPLANT
     Dates: start: 20050419, end: 20060306
  2. RAPAMUNE [Suspect]
     Indication: RENAL TRANSPLANT
     Dates: start: 20060321
  3. PREDNISOLONE [Concomitant]
  4. MYCOPHENOLATE MOFETIL [Concomitant]

REACTIONS (2)
  - CONFUSIONAL STATE [None]
  - CYTOMEGALOVIRUS GASTROENTERITIS [None]
